FAERS Safety Report 7547701-4 (Version None)
Quarter: 2011Q2

REPORT INFORMATION
  Report Type: 
  Country: None (occurrence: None)
  Receive Date: 20110614
  Receipt Date: 20110505
  Transmission Date: 20111010
  Serious: No
  Sender: FDA-Public Use
  Company Number: US-BAYER-2011-040577

PATIENT
  Sex: Female
  Weight: 76 kg

DRUGS (4)
  1. ALEVE (CAPLET) [Suspect]
     Indication: ANALGESIC THERAPY
     Dosage: 2 DF, ONCE
     Route: 048
  2. CALCIUM PLUS [CALCIUM] [Concomitant]
  3. VITAMIN B [Concomitant]
  4. VITAMIN D [Concomitant]

REACTIONS (1)
  - CONSTIPATION [None]
